FAERS Safety Report 14899844 (Version 1)
Quarter: 2018Q2

REPORT INFORMATION
  Report Type: Spontaneous
  Country: US (occurrence: US)
  Receive Date: 20180427
  Receipt Date: 20180427
  Transmission Date: 20180711
  Serious: Yes (Disabling)
  Sender: FDA-Public Use
  Company Number: None

PATIENT
  Age: 26 Year
  Sex: Female
  Weight: 51.3 kg

DRUGS (2)
  1. MONISTAT 3 [Suspect]
     Active Substance: MICONAZOLE NITRATE
     Indication: FUNGAL INFECTION
     Dosage: ?          QUANTITY:1 CREAM;?
     Route: 061
     Dates: start: 20180421, end: 20180423
  2. FLUCONAZOLE. [Concomitant]
     Active Substance: FLUCONAZOLE

REACTIONS (6)
  - Pain [None]
  - Vulvovaginal swelling [None]
  - Application site vesicles [None]
  - Skin burning sensation [None]
  - Skin irritation [None]
  - Dysuria [None]

NARRATIVE: CASE EVENT DATE: 20180422
